FAERS Safety Report 19059053 (Version 1)
Quarter: 2021Q1

REPORT INFORMATION
  Report Type: Report from Study
  Country: BE (occurrence: BE)
  Receive Date: 20210325
  Receipt Date: 20210325
  Transmission Date: 20210420
  Serious: Yes (Hospitalization)
  Sender: FDA-Public Use
  Company Number: BE-PFIZER INC-2021015423

PATIENT
  Age: 73 Year
  Weight: 47.5 kg

DRUGS (14)
  1. TELMISARTAN. [Concomitant]
     Active Substance: TELMISARTAN
     Indication: HYPERTENSION
     Dosage: 80 MG, QD (1/DAY)
     Route: 065
  2. MICARDIS [Concomitant]
     Active Substance: TELMISARTAN
     Indication: HYPERTENSION
     Dosage: 80 MG, QD (1/DAY)
     Route: 065
  3. PROPANOLOL [Concomitant]
     Active Substance: PROPRANOLOL HYDROCHLORIDE
     Indication: HYPERTENSION
     Dosage: 40 MG, QD (1/DAY)
     Route: 065
  4. PROPANOLOL RETARD [Concomitant]
     Indication: HYPERTENSION
     Dosage: 80 MG, QD (1/DAY)
     Route: 065
  5. SEDACID [Concomitant]
     Indication: GASTRIC ULCER
     Dosage: 20 MG, QD (1/DAY)
     Route: 065
  6. DUROGESIC [Concomitant]
     Active Substance: FENTANYL
     Indication: ABDOMINAL PAIN
     Dosage: 75 MG, UNK
     Route: 065
  7. PENTASA [Concomitant]
     Active Substance: MESALAMINE
     Indication: LARGE INTESTINAL ULCER
     Dosage: 4000 MG, QD (1/DAY)
     Route: 065
  8. CETUXIMAB. [Suspect]
     Active Substance: CETUXIMAB
     Indication: COLORECTAL CANCER METASTATIC
     Dosage: 250 MG/M2, WEEKLY
     Route: 042
     Dates: start: 20201015, end: 202101
  9. AMLOR [Concomitant]
     Active Substance: AMLODIPINE BESYLATE
     Indication: HYPERTENSION
     Dosage: 10 MG, QD (1/DAY)
     Route: 065
  10. XALATAN [Concomitant]
     Active Substance: LATANOPROST
     Indication: GLAUCOMA
     Dosage: 1 DROP, QD (1/DAY)
     Route: 065
  11. BRAFTOVI [Suspect]
     Active Substance: ENCORAFENIB
     Indication: COLORECTAL CANCER METASTATIC
     Dosage: 225 MG, 1X/DAY
     Route: 048
     Dates: start: 20201015, end: 202101
  12. KEPPRA [Concomitant]
     Active Substance: LEVETIRACETAM
     Indication: EPILEPSY
     Dosage: 500 MG, BID (2/DAY)
     Route: 065
  13. OMEPRAZOL [Concomitant]
     Active Substance: OMEPRAZOLE
     Indication: GASTRITIS
     Dosage: 20 MG, QD (1/DAY)
     Route: 065
  14. STEOVIT [Concomitant]
     Active Substance: CALCIUM CARBONATE
     Indication: OSTEOPOROSIS
     Dosage: 1000 MG, QD (1/DAY)
     Route: 065

REACTIONS (1)
  - Weight decreased [Recovered/Resolved with Sequelae]

NARRATIVE: CASE EVENT DATE: 20201114
